FAERS Safety Report 11133402 (Version 1)
Quarter: 2015Q2

REPORT INFORMATION
  Report Type: Spontaneous
  Country: BR (occurrence: BR)
  Receive Date: 20150522
  Receipt Date: 20150522
  Transmission Date: 20150821
  Serious: Yes (Other)
  Sender: FDA-Public Use
  Company Number: BR-ASTRAZENECA-2015SE15120

PATIENT
  Age: 75 Year
  Sex: Female
  Weight: 92 kg

DRUGS (4)
  1. UNKNOWN COMPOUNDED [Concomitant]
     Indication: FIBROMYALGIA
     Dates: start: 2005
  2. FORXIGA [Suspect]
     Active Substance: DAPAGLIFLOZIN
     Indication: TYPE 1 DIABETES MELLITUS
     Route: 048
     Dates: start: 2015, end: 2015
  3. DIAMICRON [Concomitant]
     Active Substance: GLICLAZIDE
     Indication: TYPE 1 DIABETES MELLITUS
     Route: 048
  4. GLIFAGE [Suspect]
     Active Substance: METFORMIN HYDROCHLORIDE
     Indication: TYPE 1 DIABETES MELLITUS
     Dosage: (NON AZ PRODUCT)
     Route: 048
     Dates: start: 2010

REACTIONS (3)
  - Hyperglycaemia [Recovering/Resolving]
  - Vulvovaginal pruritus [Recovered/Resolved]
  - Product use issue [Recovered/Resolved]

NARRATIVE: CASE EVENT DATE: 2015
